FAERS Safety Report 8863655 (Version 1)
Quarter: 2012Q4

REPORT INFORMATION
  Report Type: 
  Country: US (occurrence: US)
  Receive Date: 20121024
  Receipt Date: 20121024
  Transmission Date: 20130627
  Serious: No
  Sender: FDA-Public Use
  Company Number: US-AMGEN-USASP2011063204

PATIENT
  Sex: Female

DRUGS (12)
  1. ENBREL [Suspect]
     Indication: PRODUCT USED FOR UNKNOWN INDICATION
     Dosage: 50 mg, qwk
  2. PREDNISONE [Concomitant]
     Dosage: 1 mg, UNK
  3. MULTIVITAMIN                       /00097801/ [Concomitant]
  4. VANCOCIN [Concomitant]
     Dosage: 125 mg, UNK
  5. CALCIUM [Concomitant]
     Dosage: 500 mg, UNK
  6. VITAMIN D /00107901/ [Concomitant]
     Dosage: 1000 IU, UNK
  7. SPIRIVA [Concomitant]
  8. EFFEXOR [Concomitant]
     Dosage: 37.5 mg, UNK
  9. PRILOSEC                           /00661201/ [Concomitant]
     Dosage: 10 mg, UNK
  10. OMEGA 3                            /01334101/ [Concomitant]
     Dosage: 1000 mg, UNK
  11. FOLIC ACID [Concomitant]
     Dosage: 1 mg, UNK
  12. METHOTREXATE [Concomitant]
     Dosage: 2.5 mg, UNK

REACTIONS (1)
  - Pyrexia [Recovered/Resolved]
